FAERS Safety Report 16558736 (Version 3)
Quarter: 2019Q3

REPORT INFORMATION
  Report Type: Report from Study
  Country: CA (occurrence: CA)
  Receive Date: 20190711
  Receipt Date: 20190916
  Transmission Date: 20191004
  Serious: Yes (Hospitalization, Other)
  Sender: FDA-Public Use
  Company Number: CA-JNJFOC-20190238865

PATIENT
  Age: 71 Year
  Sex: Male
  Weight: 79 kg

DRUGS (2)
  1. REMICADE [Suspect]
     Active Substance: INFLIXIMAB
     Indication: COLITIS ULCERATIVE
     Dosage: (ALSO REPORTED AS 400 MG)
     Route: 042
     Dates: start: 20190212
  2. REMICADE [Suspect]
     Active Substance: INFLIXIMAB
     Dosage: STRENGTH = 100 MG
     Route: 042

REACTIONS (12)
  - Haemoglobin decreased [Recovering/Resolving]
  - Colitis ulcerative [Recovered/Resolved]
  - Electrolyte imbalance [Recovering/Resolving]
  - Peroneal nerve palsy [Unknown]
  - Herpes zoster [Recovered/Resolved]
  - Blood iron decreased [Recovering/Resolving]
  - Dermatitis diaper [Unknown]
  - Arthralgia [Recovered/Resolved]
  - Clostridium difficile infection [Recovered/Resolved]
  - Transient ischaemic attack [Recovered/Resolved]
  - Protein total decreased [Recovering/Resolving]
  - Malnutrition [Recovering/Resolving]

NARRATIVE: CASE EVENT DATE: 201902
